FAERS Safety Report 7898188-3 (Version None)
Quarter: 2011Q4

REPORT INFORMATION
  Report Type: 
  Country: None (occurrence: None)
  Receive Date: 20111107
  Receipt Date: 20111026
  Transmission Date: 20120403
  Serious: Yes (Other)
  Sender: FDA-Public Use
  Company Number: US-GLAXOSMITHKLINE-A0799005A

PATIENT
  Age: 69 Year
  Sex: Female
  Weight: 104.5 kg

DRUGS (1)
  1. AVANDIA [Suspect]
     Indication: DIABETES MELLITUS
     Route: 048

REACTIONS (10)
  - DIZZINESS [None]
  - ARTHRITIS [None]
  - FALL [None]
  - ALOPECIA [None]
  - CARDIAC FAILURE [None]
  - DYSPHAGIA [None]
  - CARDIAC PACEMAKER INSERTION [None]
  - SINUS DISORDER [None]
  - OEDEMA PERIPHERAL [None]
  - VISION BLURRED [None]
